FAERS Safety Report 6082034-7 (Version None)
Quarter: 2009Q1

REPORT INFORMATION
  Report Type: 
  Country: None (occurrence: None)
  Receive Date: 20090218
  Receipt Date: 20080911
  Transmission Date: 20090719
  Serious: No
  Sender: FDA-Public Use
  Company Number: US-BRISTOL-MYERS SQUIBB COMPANY-14332381

PATIENT
  Age: 59 Year
  Sex: Female

DRUGS (1)
  1. GLUCOPHAGE [Suspect]

REACTIONS (5)
  - BLOOD GLUCOSE [None]
  - BLOOD GLUCOSE FLUCTUATION [None]
  - HYPOGLYCAEMIA [None]
  - HYPOGLYCAEMIC UNCONSCIOUSNESS [None]
  - RENAL IMPAIRMENT [None]
